FAERS Safety Report 8054945-4 (Version None)
Quarter: 2012Q1

REPORT INFORMATION
  Report Type: 
  Country: None (occurrence: None)
  Receive Date: 20120119
  Receipt Date: 20120109
  Transmission Date: 20120608
  Serious: Yes (Hospitalization)
  Sender: FDA-Public Use
  Company Number: FR-ELI_LILLY_AND_COMPANY-FR201201002101

PATIENT
  Age: 75 Year
  Sex: Male

DRUGS (7)
  1. CYMBALTA [Suspect]
     Indication: DEPRESSION
     Dosage: 60 MG, QD
     Route: 048
     Dates: start: 20110501, end: 20110805
  2. CYMBALTA [Suspect]
     Dosage: 90 MG, QD
     Route: 048
     Dates: start: 20110805, end: 20110823
  3. LORAZEPAM [Concomitant]
     Indication: DEPRESSION
     Dosage: 2.5 MG, QD
     Route: 048
     Dates: start: 20110501, end: 20110805
  4. MYOLASTAN [Concomitant]
     Indication: DEPRESSION
     Dosage: 200 MG, UNK
     Dates: start: 20110501, end: 20110805
  5. XANAX [Concomitant]
     Indication: DEPRESSION
     Dosage: 0.5 DF, BID
  6. LORAZEPAM [Concomitant]
     Dosage: 2.5 MG, TID
     Route: 048
     Dates: start: 20110805, end: 20110801
  7. MYOLASTAN [Concomitant]
     Dosage: 50 MG, BID
     Dates: start: 20110805, end: 20110801

REACTIONS (1)
  - ATAXIA [None]
